FAERS Safety Report 8111726-0 (Version None)
Quarter: 2012Q1

REPORT INFORMATION
  Report Type: 
  Country: None (occurrence: None)
  Receive Date: 20120203
  Receipt Date: 20120130
  Transmission Date: 20120608
  Serious: Yes (Life-Threatening, Hospitalization, Other)
  Sender: FDA-Public Use
  Company Number: HU-ASTRAZENECA-2012SE04790

PATIENT
  Age: 28610 Day
  Sex: Male

DRUGS (8)
  1. METOPROLOL [Concomitant]
     Indication: HYPERTONIA
     Route: 048
  2. PLAVIX [Suspect]
     Indication: ACUTE MYOCARDIAL INFARCTION
     Route: 048
     Dates: start: 20110706, end: 20120115
  3. ROSUVASTATIN [Concomitant]
     Indication: HYPERCHOLESTEROLAEMIA
     Route: 048
  4. ISOSORBID-MONONITRATE [Concomitant]
     Indication: ANGINA PECTORIS
     Route: 062
  5. ASPIRIN [Concomitant]
     Indication: CORONARY ARTERY DISEASE
     Route: 048
  6. ALPRAZOLAM [Concomitant]
     Indication: ANXIETY
     Route: 048
  7. RAMIPRIL [Concomitant]
     Indication: HYPERTONIA
     Route: 048
  8. PANTOPRAZOLE [Concomitant]
     Indication: GASTRIC DISORDER
     Route: 048

REACTIONS (2)
  - ASTHENIA [None]
  - HAEMATEMESIS [None]
